FAERS Safety Report 7814859-9 (Version None)
Quarter: 2011Q4

REPORT INFORMATION
  Report Type: 
  Country: None (occurrence: None)
  Receive Date: 20111014
  Receipt Date: 20111007
  Transmission Date: 20120403
  Serious: Yes (Other)
  Sender: FDA-Public Use
  Company Number: US-SANOFI-AVENTIS-2011SA066046

PATIENT
  Age: 75 Year
  Sex: Female

DRUGS (1)
  1. PLAVIX [Suspect]
     Route: 048

REACTIONS (5)
  - GINGIVAL BLEEDING [None]
  - DEMENTIA ALZHEIMER'S TYPE [None]
  - HAEMATOCHEZIA [None]
  - WEIGHT DECREASED [None]
  - BLOOD URINE PRESENT [None]
